FAERS Safety Report 12357216 (Version 2)
Quarter: 2016Q2

REPORT INFORMATION
  Report Type: Report from Study
  Country: US (occurrence: US)
  Receive Date: 20160511
  Receipt Date: 20160601
  Transmission Date: 20160815
  Serious: Yes (Hospitalization)
  Sender: FDA-Public Use
  Company Number: US-ABBVIE-16K-163-1624163-00

PATIENT
  Age: 48 Year
  Sex: Male

DRUGS (3)
  1. OMEPRAZOLE. [Concomitant]
     Active Substance: OMEPRAZOLE
     Indication: PRODUCT USED FOR UNKNOWN INDICATION
  2. HUMIRA [Suspect]
     Active Substance: ADALIMUMAB
     Indication: CROHN^S DISEASE
     Route: 058
     Dates: start: 2014
  3. VITAMIN D [Concomitant]
     Active Substance: CHOLECALCIFEROL
     Indication: PRODUCT USED FOR UNKNOWN INDICATION

REACTIONS (5)
  - Intestinal scarring [Not Recovered/Not Resolved]
  - Small intestinal obstruction [Recovered/Resolved]
  - Large intestinal obstruction [Not Recovered/Not Resolved]
  - Intestinal fibrosis [Not Recovered/Not Resolved]
  - Intestinal anastomosis complication [Not Recovered/Not Resolved]

NARRATIVE: CASE EVENT DATE: 201605
